FAERS Safety Report 13481952 (Version 2)
Quarter: 2017Q3

REPORT INFORMATION
  Report Type: Report from Study
  Country: US (occurrence: US)
  Receive Date: 20170424
  Receipt Date: 20170728
  Transmission Date: 20171127
  Serious: No
  Sender: FDA-Public Use
  Company Number: US-AMGEN-USASL2017050579

PATIENT
  Age: 22 Year
  Sex: Male

DRUGS (1)
  1. REPATHA [Suspect]
     Active Substance: EVOLOCUMAB
     Indication: LOW DENSITY LIPOPROTEIN INCREASED
     Dosage: 140 MG, Q2WK
     Route: 065

REACTIONS (6)
  - Throat irritation [Recovered/Resolved]
  - Respiratory tract congestion [Recovered/Resolved]
  - Productive cough [Recovered/Resolved]
  - Drug dose omission [Unknown]
  - Sneezing [Recovered/Resolved]
  - Sputum discoloured [Recovered/Resolved]
